FAERS Safety Report 4744118-2 (Version None)
Quarter: 2005Q3

REPORT INFORMATION
  Report Type: 
  Country: None (occurrence: None)
  Receive Date: 20050812
  Receipt Date: 20050803
  Transmission Date: 20060218
  Serious: Yes (Other)
  Sender: FDA-Public Use
  Company Number: PHEH2005US08626

PATIENT
  Age: 76 Year
  Sex: Female
  Weight: 54 kg

DRUGS (4)
  1. ZOMETA [Suspect]
     Indication: NON-SMALL CELL LUNG CANCER
     Dosage: 4 MG MONTHLY
     Dates: start: 20031204, end: 20050301
  2. CARBOPLATIN [Concomitant]
  3. GEMCITABINE [Concomitant]
  4. VINORELBINE [Concomitant]

REACTIONS (4)
  - ABSCESS [None]
  - ASEPTIC NECROSIS BONE [None]
  - OSTEONECROSIS [None]
  - PAIN IN JAW [None]
